FAERS Safety Report 13092435 (Version 1)
Quarter: 2017Q1

REPORT INFORMATION
  Report Type: Spontaneous
  Country: US (occurrence: US)
  Receive Date: 20170105
  Receipt Date: 20170105
  Transmission Date: 20170428
  Serious: No
  Sender: FDA-Public Use
  Company Number: None

PATIENT
  Age: 65 Year
  Sex: Female

DRUGS (2)
  1. URSODIOL. [Concomitant]
     Active Substance: URSODIOL
  2. EPIVIR HBV [Suspect]
     Active Substance: LAMIVUDINE
     Indication: LIVER TRANSPLANT

REACTIONS (3)
  - Hepatic enzyme abnormal [None]
  - Blood glucose increased [None]
  - Renal impairment [None]

NARRATIVE: CASE EVENT DATE: 20161007
